FAERS Safety Report 5509608-3 (Version None)
Quarter: 2007Q4

REPORT INFORMATION
  Report Type: 
  Country: None (occurrence: None)
  Receive Date: 20071106
  Receipt Date: 20071106
  Transmission Date: 20080405
  Serious: No
  Sender: FDA-Public Use
  Company Number: None

PATIENT
  Age: 52 Year
  Sex: Female
  Weight: 58.0604 kg

DRUGS (1)
  1. ZICAM COLD REMEDY NASAL GEL [Suspect]
     Indication: NASOPHARYNGITIS
     Dosage: 1 PUMP IN EACH NOSTRIL EVERY 4 HOURS ENDOSINUSIAL
     Route: 006
     Dates: start: 20071012, end: 20071013

REACTIONS (8)
  - AGEUSIA [None]
  - ANOSMIA [None]
  - HYPOSMIA [None]
  - LACRIMATION INCREASED [None]
  - NASAL DISCOMFORT [None]
  - NASOPHARYNGITIS [None]
  - RHINALGIA [None]
  - SENSORY DISTURBANCE [None]
